FAERS Safety Report 14535054 (Version 1)
Quarter: 2018Q1

REPORT INFORMATION
  Report Type: Spontaneous
  Country: US (occurrence: US)
  Receive Date: 20180214
  Receipt Date: 20180214
  Transmission Date: 20180509
  Serious: No
  Sender: FDA-Public Use
  Company Number: None

PATIENT
  Age: 53 Year
  Sex: Female
  Weight: 64.8 kg

DRUGS (1)
  1. ACTIVON ULTRA STRENGTH ARTHRITIS [Suspect]
     Active Substance: HISTAMINE DIHYDROCHLORIDE\MENTHOL
     Indication: ARTHRALGIA
     Dosage: ?          OTHER STRENGTH:NONE;QUANTITY:1 ROLL-OB;?
     Route: 061

REACTIONS (2)
  - Product formulation issue [None]
  - Product substitution issue [None]

NARRATIVE: CASE EVENT DATE: 20171117
